FAERS Safety Report 5135216-2 (Version None)
Quarter: 2006Q4

REPORT INFORMATION
  Report Type: 
  Country: None (occurrence: None)
  Receive Date: 20061024
  Receipt Date: 20061024
  Transmission Date: 20070319
  Serious: Yes (Death, Life-Threatening, Hospitalization)
  Sender: FDA-Public Use
  Company Number: None

PATIENT
  Age: 87 Year
  Sex: Male

DRUGS (21)
  1. TAXOTERE [Suspect]
     Indication: PANCREATIC CARCINOMA
     Dosage: 70 MG WEEKLY IV DRIP
     Route: 041
     Dates: start: 20060928, end: 20061012
  2. GEMZAR [Suspect]
     Indication: PANCREATIC CARCINOMA
     Dosage: 1080 MG WEEKLY IV DRIP
     Route: 041
     Dates: start: 20060928, end: 20061012
  3. XELODA [Suspect]
     Indication: PANCREATIC CARCINOMA
     Dosage: 1500MG MORNING/1000 MG NIGHT BID FOR 5 DAYS PO
     Route: 048
     Dates: start: 20061001, end: 20061005
  4. REGLAN [Concomitant]
  5. ZOFRAN [Concomitant]
  6. MSSR [Concomitant]
  7. DILAUDID [Concomitant]
  8. XANAX [Concomitant]
  9. ATORVASTATIN CALCIUM [Concomitant]
  10. SOTALOL HYDROCHLORIDE [Concomitant]
  11. LEVOTHYROXINE SODIUM [Concomitant]
  12. ROSIGLITAZONE [Concomitant]
  13. ENOXAPARIN SODIUM [Concomitant]
  14. LANSOPRAXOLE [Concomitant]
  15. CALCIUM CARBONATE [Concomitant]
  16. ONDANSETRON [Concomitant]
  17. MIRALAX [Concomitant]
  18. TYLENOL [Concomitant]
  19. DOCUSATE [Concomitant]
  20. SENNA [Concomitant]
  21. GLUCERNA [Concomitant]

REACTIONS (12)
  - ASTHENIA [None]
  - BLOOD ALBUMIN DECREASED [None]
  - BLOOD GLUCOSE INCREASED [None]
  - CARDIO-RESPIRATORY ARREST [None]
  - CHEST DISCOMFORT [None]
  - FATIGUE [None]
  - HAEMOGLOBIN DECREASED [None]
  - NAUSEA [None]
  - OEDEMA PERIPHERAL [None]
  - OESOPHAGEAL DISORDER [None]
  - RETCHING [None]
  - VOMITING [None]
